FAERS Safety Report 18212011 (Version 5)
Quarter: 2020Q4

REPORT INFORMATION
  Report Type: Report from Study
  Country: None (occurrence: CA)
  Receive Date: 20200831
  Receipt Date: 20201214
  Transmission Date: 20210113
  Serious: Yes (Hospitalization, Other)
  Sender: FDA-Public Use
  Company Number: CA-ABBVIE-20K-028-3546040-00

PATIENT
  Sex: Female

DRUGS (2)
  1. HUMIRA [Suspect]
     Active Substance: ADALIMUMAB
     Indication: ANKYLOSING SPONDYLITIS
     Route: 058
     Dates: start: 20191106, end: 2020
  2. HUMIRA [Suspect]
     Active Substance: ADALIMUMAB
     Route: 058
     Dates: start: 20201008, end: 20201105

REACTIONS (7)
  - Toothache [Unknown]
  - Ankylosing spondylitis [Not Recovered/Not Resolved]
  - Hospitalisation [Unknown]
  - Tooth infection [Unknown]
  - Bronchitis [Recovered/Resolved]
  - Scar [Not Recovered/Not Resolved]
  - Pneumothorax [Recovered/Resolved]

NARRATIVE: CASE EVENT DATE: 2020
